FAERS Safety Report 12051261 (Version 3)
Quarter: 2016Q1

REPORT INFORMATION
  Report Type: Report from Study
  Country: MX (occurrence: MX)
  Receive Date: 20160209
  Receipt Date: 20160304
  Transmission Date: 20160526
  Serious: Yes (Other)
  Sender: FDA-Public Use
  Company Number: PHHY2015MX072721

PATIENT
  Sex: Female

DRUGS (5)
  1. DIOVAN [Suspect]
     Active Substance: VALSARTAN
     Indication: HYPERTENSION
     Dosage: 1 DF (80 MG), QD
     Route: 065
  2. AMLODIPINE BESILATE W/OLMESARTAN MEDOXOMIL [Concomitant]
     Indication: PRODUCT USED FOR UNKNOWN INDICATION
     Dosage: 1 DF, UNK
     Route: 065
  3. DIOVAN [Suspect]
     Active Substance: VALSARTAN
     Dosage: 1 DF, BID (ONE IN THE MORNING, ONE 12 HOURS LATER) (8 YEARS AGO APPROXI)
     Route: 065
  4. SELOPRES ZOK [Concomitant]
     Indication: PRODUCT USED FOR UNKNOWN INDICATION
     Route: 065
  5. DIOVAN [Suspect]
     Active Substance: VALSARTAN
     Dosage: 2 DF (80 MG), QD
     Route: 065

REACTIONS (6)
  - Headache [Recovered/Resolved]
  - Blood pressure increased [Unknown]
  - Infarction [Unknown]
  - Dyspnoea [Unknown]
  - Drug ineffective [Unknown]
  - Palpitations [Unknown]
